FAERS Safety Report 22072629 (Version 1)
Quarter: 2023Q1

REPORT INFORMATION
  Report Type: Spontaneous
  Country: US (occurrence: US)
  Receive Date: 20230308
  Receipt Date: 20230308
  Transmission Date: 20230417
  Serious: Yes (Hospitalization)
  Sender: FDA-Public Use
  Company Number: US-BIOVITRUM-2023-US-005900

PATIENT
  Age: 11 Year
  Sex: Male

DRUGS (1)
  1. KINERET [Suspect]
     Active Substance: ANAKINRA
     Indication: Acute myeloid leukaemia
     Dosage: UNKNOWN
     Route: 058

REACTIONS (2)
  - Neutrophil count decreased [Unknown]
  - Off label use [Unknown]
